FAERS Safety Report 6738341-5 (Version None)
Quarter: 2010Q2

REPORT INFORMATION
  Report Type: 
  Country: None (occurrence: None)
  Receive Date: 20100524
  Receipt Date: 20100510
  Transmission Date: 20101027
  Serious: Yes (Other)
  Sender: FDA-Public Use
  Company Number: US-ELI_LILLY_AND_COMPANY-US201005004707

PATIENT
  Sex: Female

DRUGS (14)
  1. FORTEO [Suspect]
     Indication: OSTEOPOROSIS
     Dosage: 20 UG, DAILY (1/D)
     Route: 058
     Dates: start: 20090812
  2. CYMBALTA [Concomitant]
  3. PENTASA [Concomitant]
  4. PHENERGAN [Concomitant]
  5. PREDNISONE [Concomitant]
  6. CARAFATE [Concomitant]
  7. BENTYL [Concomitant]
  8. OMEPRAZOLE [Concomitant]
  9. CELEBREX [Concomitant]
  10. NEURONTIN [Concomitant]
  11. LORTAB [Concomitant]
  12. PRAVASTATIN [Concomitant]
  13. AMLODIPINE BESYLATE [Concomitant]
  14. OXYTROL [Concomitant]

REACTIONS (2)
  - BRAIN NEOPLASM [None]
  - VITAMIN D DECREASED [None]
